FAERS Safety Report 11278615 (Version 1)
Quarter: 2015Q3

REPORT INFORMATION
  Report Type: Spontaneous
  Country: US (occurrence: None)
  Receive Date: 20150716
  Receipt Date: 20150716
  Transmission Date: 20151125
  Serious: Yes (Death)
  Sender: FDA-Public Use
  Company Number: None

PATIENT
  Age: 83 Year
  Sex: Male

DRUGS (1)
  1. TREANDA [Suspect]
     Active Substance: BENDAMUSTINE HYDROCHLORIDE
     Indication: NEOPLASM MALIGNANT
     Dosage: DAY 1 AND 2 EVERY 28
     Route: 042
     Dates: start: 20150311, end: 20150601

REACTIONS (1)
  - Death [None]

NARRATIVE: CASE EVENT DATE: 20150713
